FAERS Safety Report 6461029-5 (Version None)
Quarter: 2009Q4

REPORT INFORMATION
  Report Type: 
  Country: None (occurrence: None)
  Receive Date: 20091130
  Receipt Date: 20091119
  Transmission Date: 20100525
  Serious: Yes (Hospitalization)
  Sender: FDA-Public Use
  Company Number: B0520561B

PATIENT
  Sex: Female

DRUGS (3)
  1. AMBRISENTAN [Suspect]
     Indication: PULMONARY ARTERIAL HYPERTENSION
     Route: 048
     Dates: start: 20080215
  2. FLOLAN [Suspect]
     Indication: PULMONARY ARTERIAL HYPERTENSION
     Route: 042
     Dates: start: 20090722, end: 20090813
  3. LASIX [Concomitant]
     Dates: start: 20090804, end: 20090816

REACTIONS (6)
  - OXYGEN SATURATION DECREASED [None]
  - PNEUMONITIS [None]
  - PULMONARY CONGESTION [None]
  - RETINAL HAEMORRHAGE [None]
  - VISUAL IMPAIRMENT [None]
  - VITREOUS HAEMORRHAGE [None]
